FAERS Safety Report 18361506 (Version 2)
Quarter: 2020Q4

REPORT INFORMATION
  Report Type: Spontaneous
  Country: BR (occurrence: BR)
  Receive Date: 20201008
  Receipt Date: 20201023
  Transmission Date: 20210114
  Serious: Yes (Disabling)
  Sender: FDA-Public Use
  Company Number: BR-009507513-2009BRA011434

PATIENT
  Age: 81 Year
  Sex: Female
  Weight: 42 kg

DRUGS (11)
  1. REMERON SOLTAB [Suspect]
     Active Substance: MIRTAZAPINE
     Indication: AFFECTIVE DISORDER
  2. REMERON SOLTAB [Suspect]
     Active Substance: MIRTAZAPINE
     Indication: ANXIETY
  3. REMERON SOLTAB [Suspect]
     Active Substance: MIRTAZAPINE
     Indication: DEPRESSION
     Dosage: 1 TABLET DAILY, BY NIGHT
     Route: 048
     Dates: start: 20200909
  4. PROLOPA [Concomitant]
     Active Substance: BENSERAZIDE\LEVODOPA
     Indication: PARKINSON^S DISEASE
     Dosage: 5 TIMES DAILY
  5. MOTILIUM [Concomitant]
     Active Substance: DOMPERIDONE
     Dosage: 3 TABLETS DAILY
  6. PRAMIPEXOLE DIHYDROCHLORIDE. [Concomitant]
     Active Substance: PRAMIPEXOLE DIHYDROCHLORIDE
     Indication: OESOPHAGEAL DISORDER
     Dosage: UNK
  7. REMERON SOLTAB [Suspect]
     Active Substance: MIRTAZAPINE
     Indication: WEIGHT CONTROL
  8. RIVOTRIL [Concomitant]
     Active Substance: CLONAZEPAM
     Dosage: 1 TABLET AT NIGHT
     Route: 048
  9. ESOMEPRAZOLE MAGNESIUM. [Concomitant]
     Active Substance: ESOMEPRAZOLE MAGNESIUM
     Dosage: 1 TABLET IN THE MORNING
  10. REMERON SOLTAB [Suspect]
     Active Substance: MIRTAZAPINE
     Indication: SLEEP DISORDER
  11. PROLOPA [Concomitant]
     Active Substance: BENSERAZIDE\LEVODOPA
     Dosage: 5 TIMES DAILY

REACTIONS (9)
  - Presyncope [Recovered/Resolved]
  - Salivary hypersecretion [Recovering/Resolving]
  - Dysphagia [Recovered/Resolved]
  - Weight decreased [Recovered/Resolved]
  - Aphonia [Recovered/Resolved]
  - Vomiting [Recovered/Resolved]
  - Adverse event [Unknown]
  - Product use in unapproved indication [Unknown]
  - Product prescribing issue [Unknown]

NARRATIVE: CASE EVENT DATE: 2020
